FAERS Safety Report 22093111 (Version 1)
Quarter: 2023Q1

REPORT INFORMATION
  Report Type: Report from Study
  Country: US (occurrence: US)
  Receive Date: 20230314
  Receipt Date: 20230314
  Transmission Date: 20230417
  Serious: Yes (Hospitalization)
  Sender: FDA-Public Use
  Company Number: US-ABBVIE-4338957

PATIENT
  Sex: Female

DRUGS (1)
  1. HUMIRA [Suspect]
     Active Substance: ADALIMUMAB
     Indication: Psoriasis
     Route: 058
     Dates: start: 20140828

REACTIONS (6)
  - Hypertension [Unknown]
  - Asthenia [Unknown]
  - Glucose tolerance impaired [Unknown]
  - Psoriasis [Unknown]
  - Tooth extraction [Unknown]
  - Weight decreased [Unknown]
